FAERS Safety Report 4583817-2 (Version None)
Quarter: 2005Q1

REPORT INFORMATION
  Report Type: 
  Country: None (occurrence: None)
  Receive Date: 20050216
  Receipt Date: 20050207
  Transmission Date: 20050727
  Serious: Yes (Life-Threatening, Hospitalization)
  Sender: FDA-Public Use
  Company Number: JP-JNJFOC-20050202110

PATIENT
  Sex: Male

DRUGS (28)
  1. RISPERDAL [Suspect]
     Route: 049
  2. RISPERDAL [Suspect]
     Route: 049
  3. RISPERDAL [Suspect]
     Route: 049
  4. RISPERDAL [Suspect]
     Route: 049
  5. RISPERDAL [Suspect]
     Route: 049
  6. RISPERDAL [Suspect]
     Route: 049
  7. RISPERDAL [Suspect]
     Route: 049
  8. RISPERDAL [Suspect]
     Route: 049
  9. RISPERDAL [Suspect]
     Route: 049
  10. RISPERDAL [Suspect]
     Route: 049
  11. RISPERDAL [Suspect]
     Route: 049
  12. RISPERDAL [Suspect]
     Indication: SCHIZOPHRENIA
     Route: 049
  13. FLUNITRAZEPAM [Concomitant]
     Route: 049
     Dates: start: 20031118, end: 20031202
  14. BIPERIDEN HYDROCHLORIDE TAB [Concomitant]
     Route: 049
     Dates: start: 20031215
  15. LORAZEPAM [Concomitant]
     Route: 049
  16. LORAZEPAM [Concomitant]
     Route: 049
  17. LORAZEPAM [Concomitant]
     Route: 049
  18. LORAZEPAM [Concomitant]
     Route: 049
  19. LORAZEPAM [Concomitant]
     Route: 049
  20. LORAZEPAM [Concomitant]
     Route: 049
  21. LORAZEPAM [Concomitant]
     Route: 049
  22. LORAZEPAM [Concomitant]
     Route: 049
  23. LORAZEPAM [Concomitant]
     Route: 049
  24. NITRAZEPAM [Concomitant]
     Route: 049
     Dates: start: 20031215
  25. NITRAZEPAM [Concomitant]
     Route: 049
     Dates: start: 20031215
  26. FAMOTIDINE [Concomitant]
     Route: 049
     Dates: start: 20031215, end: 20040204
  27. FAMOTIDINE [Concomitant]
     Indication: HYPERCHLORHYDRIA
     Route: 049
     Dates: start: 20031215, end: 20040204
  28. CLONAZEPAM [Concomitant]
     Dates: start: 20040129

REACTIONS (2)
  - STATUS EPILEPTICUS [None]
  - SUICIDE ATTEMPT [None]
